FAERS Safety Report 14438566 (Version 1)
Quarter: 2018Q1

REPORT INFORMATION
  Report Type: Spontaneous
  Country: US (occurrence: US)
  Receive Date: 20180125
  Receipt Date: 20180125
  Transmission Date: 20180509
  Serious: Yes (Other)
  Sender: FDA-Public Use
  Company Number: US-IPSEN BIOPHARMACEUTICALS, INC.-2018-01134

PATIENT
  Sex: Male

DRUGS (1)
  1. DYSPORT [Suspect]
     Active Substance: ABOBOTULINUMTOXINA
     Indication: TORTICOLLIS
     Dosage: NOT REPORTED
     Route: 065
     Dates: start: 20171213, end: 20171213

REACTIONS (13)
  - Skin exfoliation [Not Recovered/Not Resolved]
  - Arthralgia [Unknown]
  - Dizziness [Unknown]
  - Neuromuscular toxicity [Not Recovered/Not Resolved]
  - Vision blurred [Not Recovered/Not Resolved]
  - Asthenia [Not Recovered/Not Resolved]
  - Loss of personal independence in daily activities [Not Recovered/Not Resolved]
  - Rash [Not Recovered/Not Resolved]
  - Eyelid ptosis [Not Recovered/Not Resolved]
  - Dysphonia [Not Recovered/Not Resolved]
  - Dysphagia [Recovering/Resolving]
  - Gait disturbance [Not Recovered/Not Resolved]
  - Limb discomfort [Not Recovered/Not Resolved]
